FAERS Safety Report 8380824-9 (Version None)
Quarter: 2012Q2

REPORT INFORMATION
  Report Type: 
  Country: None (occurrence: None)
  Receive Date: 20120523
  Receipt Date: 20120515
  Transmission Date: 20120825
  Serious: Yes (Other)
  Sender: FDA-Public Use
  Company Number: US-CELGENEUS-163-21880-08100943

PATIENT
  Sex: Female
  Weight: 59.02 kg

DRUGS (15)
  1. ASPIRIN [Concomitant]
     Dosage: 325 MILLIGRAM
     Route: 065
  2. VITAMIN B COMPLEX CAP [Concomitant]
     Indication: SUPPLEMENTATION THERAPY
     Dosage: 1
     Route: 065
  3. CALCIUM [Concomitant]
     Indication: SUPPLEMENTATION THERAPY
     Dosage: 500 MILLIGRAM
     Route: 065
  4. GLUCOSAMINE [Concomitant]
     Dosage: 750 MILLIGRAM
     Route: 065
  5. FERROUS GLUCONATE [Concomitant]
     Dosage: 325 MILLIGRAM
     Route: 065
  6. BACTRIM DS [Concomitant]
     Dosage: 800-160
     Route: 065
  7. PREDNISONE [Concomitant]
     Dosage: 5 MG AND 4 MG
     Route: 065
  8. VITAMIN D [Concomitant]
     Indication: SUPPLEMENTATION THERAPY
     Dosage: 2000 IU (INTERNATIONAL UNIT)
     Route: 065
  9. PRILOSEC [Concomitant]
     Dosage: 20 MILLIGRAM
     Route: 065
  10. REVLIMID [Suspect]
     Indication: MULTIPLE MYELOMA
     Dosage: 10 MILLIGRAM
     Route: 048
     Dates: start: 20060701, end: 20081009
  11. ZOMIG [Concomitant]
     Indication: HEADACHE
     Dosage: 5 MILLIGRAM
     Route: 048
  12. REVLIMID [Suspect]
     Dosage: 5 MILLIGRAM
     Route: 048
  13. VITAMIN TAB [Concomitant]
     Route: 065
  14. DEXAMETHASONE [Concomitant]
     Route: 065
  15. ZOMETA [Concomitant]
     Dosage: 4 MILLIGRAM
     Route: 041

REACTIONS (3)
  - BREAST CANCER [None]
  - MIGRAINE [None]
  - RESPIRATORY TRACT INFECTION [None]
